FAERS Safety Report 13225935 (Version 2)
Quarter: 2017Q1

REPORT INFORMATION
  Report Type: Spontaneous
  Country: JP (occurrence: JP)
  Receive Date: 20170213
  Receipt Date: 20170215
  Transmission Date: 20170428
  Serious: Yes (Other)
  Sender: FDA-Public Use
  Company Number: JP-MEDA-2017020025

PATIENT
  Age: 81 Year
  Sex: Male

DRUGS (14)
  1. VESICARE [Concomitant]
     Active Substance: SOLIFENACIN SUCCINATE
     Route: 048
     Dates: start: 20161210, end: 20170119
  2. SAWACILLIN [Concomitant]
     Active Substance: AMOXICILLIN
     Route: 048
     Dates: start: 20170114, end: 20170118
  3. SELARA [Concomitant]
     Active Substance: EPLERENONE
     Route: 048
     Dates: start: 20161210, end: 20161216
  4. AMLODIN OD [Concomitant]
     Active Substance: AMLODIPINE BESYLATE
     Route: 048
     Dates: start: 20161225
  5. LUPRAC [Suspect]
     Active Substance: TORSEMIDE
     Route: 048
     Dates: start: 20161229, end: 20170118
  6. TAMIFLU [Concomitant]
     Active Substance: OSELTAMIVIR PHOSPHATE
     Route: 048
     Dates: start: 20170114, end: 20170121
  7. LUPRAC [Suspect]
     Active Substance: TORSEMIDE
     Route: 048
     Dates: start: 20161210, end: 20161228
  8. OLMETEC [Concomitant]
     Active Substance: OLMESARTAN MEDOXOMIL
     Route: 048
     Dates: start: 20161210, end: 20170119
  9. CEFTRIAXONE SODIUM. [Concomitant]
     Active Substance: CEFTRIAXONE SODIUM
     Route: 041
     Dates: start: 20161210, end: 20161214
  10. LUPRAC [Suspect]
     Active Substance: TORSEMIDE
     Route: 048
     Dates: start: 20170119, end: 20170124
  11. URIEF [Concomitant]
     Active Substance: SILODOSIN
     Route: 048
     Dates: start: 20161210, end: 20170119
  12. LASIX [Concomitant]
     Active Substance: FUROSEMIDE
     Route: 041
     Dates: start: 20161210, end: 20161214
  13. ARTIST [Concomitant]
     Active Substance: CARVEDILOL
     Route: 048
     Dates: start: 20161217
  14. SOLDEM 3A [Concomitant]
     Active Substance: CARBOHYDRATES\POTASSIUM CHLORIDE\SODIUM CHLORIDE\SODIUM LACTATE
     Route: 041

REACTIONS (1)
  - Hyperkalaemia [Unknown]

NARRATIVE: CASE EVENT DATE: 20170111
